FAERS Safety Report 19370107 (Version 2)
Quarter: 2021Q2

REPORT INFORMATION
  Report Type: Spontaneous
  Country: JP (occurrence: JP)
  Receive Date: 20210604
  Receipt Date: 20210621
  Transmission Date: 20210717
  Serious: Yes (Death, Hospitalization)
  Sender: FDA-Public Use
  Company Number: JP-JNJFOC-20210602315

PATIENT
  Age: 76 Year
  Sex: Male
  Weight: 55.6 kg

DRUGS (2)
  1. ERLEADA [Suspect]
     Active Substance: APALUTAMIDE
     Indication: PROSTATE CANCER METASTATIC
     Route: 048
     Dates: start: 20210226, end: 20210509
  2. DENOSUMAB(GENETICAL RECOMBINATION) [Concomitant]
     Dosage: DOSE UNKNOWN
     Route: 065
     Dates: start: 20210226

REACTIONS (3)
  - Hypokinesia [Unknown]
  - Decreased appetite [Unknown]
  - Toxic epidermal necrolysis [Fatal]

NARRATIVE: CASE EVENT DATE: 20210423
